FAERS Safety Report 9988228 (Version 2)
Quarter: 2014Q1

REPORT INFORMATION
  Report Type: Spontaneous
  Country: US (occurrence: US)
  Receive Date: 20140309
  Receipt Date: 20140326
  Transmission Date: 20141002
  Serious: No
  Sender: FDA-Public Use
  Company Number: US-009507513-1402USA013362

PATIENT
  Age: 66 Year
  Sex: Female

DRUGS (2)
  1. FOSAMAX [Suspect]
     Indication: OSTEOPOROSIS
     Dosage: 70 MG, ONCE WEEKLY
     Route: 048
     Dates: start: 20140222
  2. OMEPRAZOLE [Concomitant]
     Dosage: 20 MG, ONCE DAILY
     Route: 048

REACTIONS (2)
  - Dental operation [Unknown]
  - Tooth extraction [Unknown]
